FAERS Safety Report 6984744-3 (Version None)
Quarter: 2010Q3

REPORT INFORMATION
  Report Type: 
  Country: None (occurrence: None)
  Receive Date: 20100914
  Receipt Date: 20100914
  Transmission Date: 20110219
  Serious: Yes (Other)
  Sender: FDA-Public Use
  Company Number: None

PATIENT
  Age: 13 Year
  Sex: Female

DRUGS (1)
  1. ORTHO EVRA [Suspect]
     Indication: MENSTRUAL DISORDER
     Dosage: APPLY 1 PATCH WEEKLY CONTINUOUSLY 2 WEEKS

REACTIONS (2)
  - METRORRHAGIA [None]
  - PRODUCT ADHESION ISSUE [None]
